FAERS Safety Report 11790106 (Version 2)
Quarter: 2015Q4

REPORT INFORMATION
  Report Type: Spontaneous
  Country: DE (occurrence: DE)
  Receive Date: 20151201
  Receipt Date: 20151223
  Transmission Date: 20160305
  Serious: Yes (Hospitalization, Other)
  Sender: FDA-Public Use
  Company Number: DE-ELI_LILLY_AND_COMPANY-DE201511006974

PATIENT
  Age: 51 Year
  Sex: Female

DRUGS (6)
  1. ZYPADHERA [Suspect]
     Active Substance: OLANZAPINE PAMOATE
     Indication: SCHIZOPHRENIA
     Dosage: 405 MG, MONTHLY (1/M)
     Route: 030
     Dates: start: 20141112, end: 20150626
  2. ZYPREXA [Suspect]
     Active Substance: OLANZAPINE
     Indication: PRODUCT USED FOR UNKNOWN INDICATION
     Dosage: 20 MG, QD
     Route: 065
     Dates: start: 2008
  3. ABILIFY [Suspect]
     Active Substance: ARIPIPRAZOLE
     Indication: PRODUCT USED FOR UNKNOWN INDICATION
     Dosage: 10 MG, QD
     Route: 065
  4. SERTRALINE [Concomitant]
     Active Substance: SERTRALINE HYDROCHLORIDE
     Indication: PRODUCT USED FOR UNKNOWN INDICATION
     Dosage: 100 MG, QD
     Route: 065
  5. PREGABALIN. [Concomitant]
     Active Substance: PREGABALIN
     Indication: PRODUCT USED FOR UNKNOWN INDICATION
     Dosage: 50 DF, EACH MORNING
     Route: 065
  6. PREGABALIN. [Concomitant]
     Active Substance: PREGABALIN
     Dosage: 75 DF, EACH EVENING
     Route: 065

REACTIONS (15)
  - Hyperhidrosis [Unknown]
  - Protein total decreased [Unknown]
  - Flat affect [Unknown]
  - Blood cholesterol increased [Unknown]
  - Decreased interest [Unknown]
  - Alanine aminotransferase increased [Unknown]
  - Bradyarrhythmia [Not Recovered/Not Resolved]
  - General physical health deterioration [Unknown]
  - Blood creatine phosphokinase increased [Unknown]
  - Gamma-glutamyltransferase increased [Unknown]
  - Blood glucose increased [Unknown]
  - Dysstasia [Unknown]
  - Psychiatric decompensation [Unknown]
  - Bradyphrenia [Unknown]
  - Chronic sinusitis [Unknown]

NARRATIVE: CASE EVENT DATE: 20150624
